FAERS Safety Report 15025542 (Version 1)
Quarter: 2018Q2

REPORT INFORMATION
  Report Type: Spontaneous
  Country: US (occurrence: US)
  Receive Date: 20180618
  Receipt Date: 20180618
  Transmission Date: 20180711
  Serious: No
  Sender: FDA-Public Use
  Company Number: US-009507513-1806USA003175

PATIENT
  Sex: Female
  Weight: 129.25 kg

DRUGS (1)
  1. NEXPLANON [Suspect]
     Active Substance: ETONOGESTREL
     Dosage: 1 IMPLANT
     Route: 059
     Dates: start: 20180406

REACTIONS (2)
  - Medical device site discomfort [Unknown]
  - Device kink [Not Recovered/Not Resolved]

NARRATIVE: CASE EVENT DATE: 2018
